FAERS Safety Report 15233761 (Version 2)
Quarter: 2018Q3

REPORT INFORMATION
  Report Type: Report from Study
  Country: US (occurrence: US)
  Receive Date: 20180802
  Receipt Date: 20180919
  Transmission Date: 20181010
  Serious: Yes (Other)
  Sender: FDA-Public Use
  Company Number: US-JAZZ-2018-US-006387

PATIENT
  Age: 42 Year
  Sex: Female

DRUGS (11)
  1. CELECOXIB. [Concomitant]
     Active Substance: CELECOXIB
  2. RIZATRIPTAN. [Concomitant]
     Active Substance: RIZATRIPTAN
  3. XYREM [Suspect]
     Active Substance: SODIUM OXYBATE
     Dosage: 4 G, (SECOND DOSE)
     Route: 048
     Dates: start: 20180414, end: 2018
  4. FEMRING [Concomitant]
     Active Substance: ESTRADIOL ACETATE
  5. HYDROXYZINE PAM [Concomitant]
     Active Substance: HYDROXYZINE PAMOATE
  6. ABILIFY [Concomitant]
     Active Substance: ARIPIPRAZOLE
  7. ZONISAMIDE. [Concomitant]
     Active Substance: ZONISAMIDE
  8. LEXAPRO [Concomitant]
     Active Substance: ESCITALOPRAM OXALATE
  9. PROAIR HFA [Concomitant]
     Active Substance: ALBUTEROL SULFATE
  10. XYREM [Suspect]
     Active Substance: SODIUM OXYBATE
     Indication: INSOMNIA
     Dosage: 2 G, (FIRST DOSE)
     Route: 048
     Dates: start: 20180414, end: 2018
  11. EXCEDRIN TENSION HEADACHE [Concomitant]
     Active Substance: ACETAMINOPHEN\CAFFEINE

REACTIONS (11)
  - Choking [Unknown]
  - Pollakiuria [Not Recovered/Not Resolved]
  - Pain [Not Recovered/Not Resolved]
  - Peripheral swelling [Not Recovered/Not Resolved]
  - Seizure [Unknown]
  - Nasopharyngitis [Unknown]
  - Vomiting [Unknown]
  - Fatigue [Not Recovered/Not Resolved]
  - Muscle tightness [Recovered/Resolved]
  - Migraine [Not Recovered/Not Resolved]
  - Pertussis [Unknown]

NARRATIVE: CASE EVENT DATE: 2018
